FAERS Safety Report 4927701-0 (Version None)
Quarter: 2006Q1

REPORT INFORMATION
  Report Type: 
  Country: None (occurrence: None)
  Receive Date: 20060228
  Receipt Date: 20060217
  Transmission Date: 20060701
  Serious: Yes (Hospitalization)
  Sender: FDA-Public Use
  Company Number: US-MERCK-0602USA04955

PATIENT
  Age: 76 Year
  Sex: Female
  Weight: 64 kg

DRUGS (8)
  1. VIOXX [Suspect]
     Indication: ARTHRITIS
     Route: 048
     Dates: start: 19991215, end: 20040930
  2. PREMARIN [Concomitant]
     Indication: THYROID DISORDER
     Route: 065
     Dates: start: 19990101, end: 20041201
  3. GEMFIBROZIL [Concomitant]
     Indication: BLOOD CHOLESTEROL INCREASED
     Route: 065
     Dates: start: 20010808
  4. HYDRODIURIL [Concomitant]
     Indication: OEDEMA PERIPHERAL
     Route: 048
     Dates: start: 20030503
  5. WELLBUTRIN [Concomitant]
     Indication: DEPRESSION
     Route: 065
  6. CELEXA [Concomitant]
     Indication: DEPRESSION
     Route: 065
  7. CLONAZEPAM [Concomitant]
     Indication: ANXIETY
     Route: 065
  8. NITROGLYCERIN [Concomitant]
     Indication: CARDIAC DISORDER
     Route: 065
     Dates: start: 20031107

REACTIONS (1)
  - CEREBROVASCULAR ACCIDENT [None]
